FAERS Safety Report 25012595 (Version 1)
Quarter: 2025Q1

REPORT INFORMATION
  Report Type: Spontaneous
  Country: US (occurrence: None)
  Receive Date: 20250226
  Receipt Date: 20250226
  Transmission Date: 20250409
  Serious: No
  Sender: AXSOME THERAPEUTICS, INC.
  Company Number: US-Axsome Therapeutics, Inc.-AXS202411-001997

PATIENT

DRUGS (1)
  1. AUVELITY [Suspect]
     Active Substance: BUPROPION HYDROCHLORIDE\DEXTROMETHORPHAN HYDROBROMIDE
     Indication: Product used for unknown indication
     Route: 048

REACTIONS (8)
  - Palpitations [Unknown]
  - Apathy [Unknown]
  - Decreased appetite [Unknown]
  - Depression [Unknown]
  - Depressed mood [Unknown]
  - Anxiety [Unknown]
  - Fatigue [Unknown]
  - Dry mouth [Unknown]
